FAERS Safety Report 6502714-6 (Version None)
Quarter: 2009Q4

REPORT INFORMATION
  Report Type: 
  Country: None (occurrence: None)
  Receive Date: 20091217
  Receipt Date: 20091209
  Transmission Date: 20100525
  Serious: Yes (Hospitalization)
  Sender: FDA-Public Use
  Company Number: FR-BRISTOL-MYERS SQUIBB COMPANY-14890958

PATIENT
  Age: 90 Year
  Sex: Male

DRUGS (9)
  1. COUMADIN [Suspect]
     Indication: PULMONARY EMBOLISM
     Route: 048
     Dates: end: 20090117
  2. BACTRIM DS [Interacting]
     Indication: SEPSIS
     Dosage: 1 DF = 160MG/800MG
     Route: 048
     Dates: end: 20090117
  3. FLAGYL [Interacting]
     Indication: SEPSIS
     Route: 048
     Dates: end: 20090117
  4. CORDARONE [Interacting]
     Indication: ATRIAL FIBRILLATION
     Route: 048
     Dates: end: 20090117
  5. LASILIX [Concomitant]
     Dosage: TABS
  6. LANTUS [Concomitant]
     Route: 058
  7. NOVORAPID [Concomitant]
     Route: 058
  8. ATROVENT [Concomitant]
     Route: 055
     Dates: end: 20090117
  9. BRICANYL [Concomitant]
     Route: 055

REACTIONS (4)
  - DRUG INTERACTION [None]
  - HYPOTENSION [None]
  - MELAENA [None]
  - OESOPHAGITIS ULCERATIVE [None]
